FAERS Safety Report 6921106-9 (Version None)
Quarter: 2010Q3

REPORT INFORMATION
  Report Type: 
  Country: None (occurrence: None)
  Receive Date: 20100812
  Receipt Date: 20100809
  Transmission Date: 20110219
  Serious: Yes (Hospitalization)
  Sender: FDA-Public Use
  Company Number: CO-ROCHE-719915

PATIENT
  Sex: Female

DRUGS (5)
  1. ACTEMRA [Suspect]
     Indication: RHEUMATOID ARTHRITIS
     Dosage: FORM: INFUSION
     Route: 042
     Dates: start: 20091222, end: 20100731
  2. PREDNISOLONA [Concomitant]
     Indication: RHEUMATOID ARTHRITIS
     Route: 048
  3. LOSARTAN POTASSIUM [Concomitant]
     Route: 048
  4. METHOTREXATE [Concomitant]
     Indication: RHEUMATOID ARTHRITIS
     Route: 058
  5. FOLIC ACID [Concomitant]
     Route: 048

REACTIONS (1)
  - HIATUS HERNIA [None]
